FAERS Safety Report 16483468 (Version 2)
Quarter: 2019Q3

REPORT INFORMATION
  Report Type: Not Available
  Country: US (occurrence: US)
  Receive Date: 20190627
  Receipt Date: 20190807
  Transmission Date: 20191004
  Serious: No
  Sender: FDA-Public Use
  Company Number: US-NEUROCRINE BIOSCIENCES INC.-2019NBI01620

PATIENT
  Age: 57 Year
  Sex: Female

DRUGS (10)
  1. VERAPAMIL [Concomitant]
     Active Substance: VERAPAMIL HYDROCHLORIDE
  2. FLUDROCORTISONE [Concomitant]
     Active Substance: FLUDROCORTISONE
  3. METOPROLOL. [Concomitant]
     Active Substance: METOPROLOL
  4. PRISTIQ EXTENDED-RELEASE [Concomitant]
     Active Substance: DESVENLAFAXINE SUCCINATE
  5. METHOTREXATE. [Concomitant]
     Active Substance: METHOTREXATE
  6. MIDODRINE [Concomitant]
     Active Substance: MIDODRINE
  7. INGREZZA [Suspect]
     Active Substance: VALBENAZINE
     Indication: TARDIVE DYSKINESIA
     Route: 048
     Dates: start: 20190605, end: 20190612
  8. HYOSCYAMINE. [Concomitant]
     Active Substance: HYOSCYAMINE
  9. ROSUVASTATIN. [Concomitant]
     Active Substance: ROSUVASTATIN
  10. ABILIFY [Concomitant]
     Active Substance: ARIPIPRAZOLE

REACTIONS (1)
  - Postural orthostatic tachycardia syndrome [Recovered/Resolved]

NARRATIVE: CASE EVENT DATE: 20190610
